FAERS Safety Report 7619227-0 (Version None)
Quarter: 2011Q3

REPORT INFORMATION
  Report Type: 
  Country: None (occurrence: None)
  Receive Date: 20110718
  Receipt Date: 20110707
  Transmission Date: 20111222
  Serious: Yes (Other)
  Sender: FDA-Public Use
  Company Number: US-ASTRAZENECA-2011SE40781

PATIENT
  Age: 72 Year
  Sex: Female

DRUGS (4)
  1. METOPROLOL TARTRATE [Suspect]
     Route: 065
  2. RHINOCORT [Concomitant]
  3. TOPROL-XL [Concomitant]
  4. LISINOPRIL [Suspect]
     Route: 048

REACTIONS (1)
  - HIP FRACTURE [None]
